FAERS Safety Report 14576025 (Version 1)
Quarter: 2018Q1

REPORT INFORMATION
  Report Type: Spontaneous
  Country: LB (occurrence: LB)
  Receive Date: 20180227
  Receipt Date: 20180227
  Transmission Date: 20180509
  Serious: Yes (Other)
  Sender: FDA-Public Use
  Company Number: LB-009507513-1802LBN010377

PATIENT
  Age: 79 Year
  Sex: Male

DRUGS (2)
  1. PEMBROLIZUMAB. [Suspect]
     Active Substance: PEMBROLIZUMAB
     Indication: MICROSATELLITE INSTABILITY CANCER
  2. PEMBROLIZUMAB. [Suspect]
     Active Substance: PEMBROLIZUMAB
     Indication: ADENOCARCINOMA GASTRIC
     Dosage: 200 MG, Q3W
     Route: 042

REACTIONS (3)
  - Ophthalmoplegia [Not Recovered/Not Resolved]
  - Myositis [Not Recovered/Not Resolved]
  - Myocarditis [Recovered/Resolved]
